FAERS Safety Report 7523527-2 (Version None)
Quarter: 2011Q2

REPORT INFORMATION
  Report Type: 
  Country: None (occurrence: None)
  Receive Date: 20110601
  Receipt Date: 20110601
  Transmission Date: 20111010
  Serious: Yes (Hospitalization, Other)
  Sender: FDA-Public Use
  Company Number: None

PATIENT
  Sex: Female
  Weight: 100.6985 kg

DRUGS (1)
  1. AVELOX [Suspect]
     Dosage: 400MG DAILY 1 X DAY PO
     Route: 048
     Dates: start: 20100902, end: 20100912

REACTIONS (9)
  - MALAISE [None]
  - ASTHENIA [None]
  - PAIN [None]
  - PURULENCE [None]
  - STAPHYLOCOCCAL SKIN INFECTION [None]
  - BLISTER [None]
  - NAUSEA [None]
  - CHILLS [None]
  - BODY TEMPERATURE INCREASED [None]
